FAERS Safety Report 16165503 (Version 2)
Quarter: 2019Q2

REPORT INFORMATION
  Report Type: Spontaneous
  Country: KR (occurrence: KR)
  Receive Date: 20190405
  Receipt Date: 20190503
  Transmission Date: 20190711
  Serious: Yes (Death, Other)
  Sender: FDA-Public Use
  Company Number: KR-AMGEN-KORSP2019053842

PATIENT

DRUGS (3)
  1. REVLIMID [Concomitant]
     Active Substance: LENALIDOMIDE
     Indication: PLASMA CELL MYELOMA
     Dosage: UNK
  2. KYPROLIS [Suspect]
     Active Substance: CARFILZOMIB
     Indication: PLASMA CELL MYELOMA
     Dosage: UNK
     Route: 065
  3. DEXAMETHASONE. [Concomitant]
     Active Substance: DEXAMETHASONE
     Indication: PLASMA CELL MYELOMA
     Dosage: UNK

REACTIONS (12)
  - Neutropenia [Unknown]
  - Hypertension [Unknown]
  - Infection [Unknown]
  - Oedema [Unknown]
  - Myalgia [Unknown]
  - Liver function test increased [Unknown]
  - Plasma cell myeloma [Unknown]
  - Weight increased [Unknown]
  - IIIrd nerve paralysis [Unknown]
  - Cardiac failure [Unknown]
  - Death [Fatal]
  - Thrombocytopenia [Unknown]
